FAERS Safety Report 13209773 (Version 1)
Quarter: 2017Q1

REPORT INFORMATION
  Report Type: Spontaneous
  Country: US (occurrence: US)
  Receive Date: 20170209
  Receipt Date: 20170209
  Transmission Date: 20170428
  Serious: Yes (Hospitalization)
  Sender: FDA-Public Use
  Company Number: None

PATIENT
  Age: 69 Year
  Sex: Male
  Weight: 83.6 kg

DRUGS (2)
  1. NAFCILLIN [Suspect]
     Active Substance: NAFCILLIN\NAFCILLIN SODIUM
     Indication: INFECTION
     Route: 042
     Dates: start: 20161222, end: 20170106
  2. USTEKINUMAB [Suspect]
     Active Substance: USTEKINUMAB
     Route: 058
     Dates: start: 20160921, end: 20161202

REACTIONS (4)
  - Rash [None]
  - Drug eruption [None]
  - Hypersensitivity [None]
  - Dermatitis exfoliative [None]

NARRATIVE: CASE EVENT DATE: 20160108
